FAERS Safety Report 6633185-7 (Version None)
Quarter: 2010Q1

REPORT INFORMATION
  Report Type: 
  Country: None (occurrence: None)
  Receive Date: 20100312
  Receipt Date: 20100305
  Transmission Date: 20100710
  Serious: Yes (Hospitalization)
  Sender: FDA-Public Use
  Company Number: PHHO2009US12707

PATIENT
  Sex: Male

DRUGS (1)
  1. ALDESLEUKIN C-ALDE+ [Suspect]
     Indication: MALIGNANT MELANOMA
     Dosage: UNK
     Route: 042
     Dates: start: 20090901

REACTIONS (1)
  - THROMBOCYTOPENIA [None]
